FAERS Safety Report 11724184 (Version 1)
Quarter: 2015Q4

REPORT INFORMATION
  Report Type: Spontaneous
  Country: CA (occurrence: CA)
  Receive Date: 20151111
  Receipt Date: 20151111
  Transmission Date: 20160304
  Serious: No
  Sender: FDA-Public Use
  Company Number: CA-SUNOVION-2015SUN000838

PATIENT
  Age: 46 Year
  Sex: Female
  Weight: 54.42 kg

DRUGS (18)
  1. LATUDA [Suspect]
     Active Substance: LURASIDONE HYDROCHLORIDE
     Dosage: 20 MG, UNK
     Route: 048
     Dates: start: 201509, end: 201509
  2. EPIVAL [Concomitant]
     Active Substance: DIVALPROEX SODIUM
     Dosage: 2250 MG, QD
     Route: 048
  3. SEROQUEL [Concomitant]
     Active Substance: QUETIAPINE FUMARATE
     Dosage: 700 MG, QD
  4. NICOTINE. [Concomitant]
     Active Substance: NICOTINE
     Dosage: UNK
  5. TOPAMAX [Concomitant]
     Active Substance: TOPIRAMATE
     Dosage: 150 MG, HS
     Route: 048
  6. TOPAMAX [Concomitant]
     Active Substance: TOPIRAMATE
     Dosage: 50 MG, QD
     Route: 048
  7. LATUDA [Suspect]
     Active Substance: LURASIDONE HYDROCHLORIDE
     Dosage: 20 MG, UNK
     Route: 048
     Dates: start: 201506, end: 201507
  8. LATUDA [Suspect]
     Active Substance: LURASIDONE HYDROCHLORIDE
     Dosage: 40 MG, UNK
     Route: 048
     Dates: start: 201509, end: 201510
  9. LATUDA [Suspect]
     Active Substance: LURASIDONE HYDROCHLORIDE
     Dosage: 60 MG, UNK
     Route: 048
     Dates: start: 201510, end: 201510
  10. QUETIAPINE XR [Suspect]
     Active Substance: QUETIAPINE
     Dosage: 400 MG, UNK
  11. LATUDA [Suspect]
     Active Substance: LURASIDONE HYDROCHLORIDE
     Indication: BIPOLAR I DISORDER
     Dosage: 20 MG, UNK
     Route: 048
     Dates: start: 201505, end: 201506
  12. QUETIAPINE XR [Suspect]
     Active Substance: QUETIAPINE
     Dosage: 200 MG, UNK
     Dates: start: 201508, end: 201509
  13. SEROQUEL [Concomitant]
     Active Substance: QUETIAPINE FUMARATE
     Dosage: 700 MG, QD
  14. LATUDA [Suspect]
     Active Substance: LURASIDONE HYDROCHLORIDE
     Dosage: 40 MG, UNK
     Route: 048
     Dates: start: 201507, end: 201509
  15. QUETIAPINE XR [Suspect]
     Active Substance: QUETIAPINE
     Dosage: 400 MG, UNK
     Dates: start: 201509
  16. LITHIUM. [Concomitant]
     Active Substance: LITHIUM
     Dosage: 900 MG, QD
     Route: 048
  17. QUETIAPINE FUMARATE. [Concomitant]
     Active Substance: QUETIAPINE FUMARATE
     Dosage: 300 MG, HS
     Route: 048
  18. SEROQUEL [Concomitant]
     Active Substance: QUETIAPINE FUMARATE
     Dosage: 600 MG, QD

REACTIONS (8)
  - Stress [Unknown]
  - Mania [Recovered/Resolved]
  - Bipolar I disorder [Not Recovered/Not Resolved]
  - Depression [Unknown]
  - Psychotic disorder [Unknown]
  - Increased appetite [Unknown]
  - Drug ineffective [Unknown]
  - Hypomania [Unknown]

NARRATIVE: CASE EVENT DATE: 201507
